FAERS Safety Report 9753705 (Version 2)
Quarter: 2017Q4

REPORT INFORMATION
  Report Type: Report from Study
  Country: IT (occurrence: IT)
  Receive Date: 20131213
  Receipt Date: 20171026
  Transmission Date: 20180321
  Serious: Yes (Other)
  Sender: FDA-Public Use
  Company Number: PHHY2013IT142815

PATIENT
  Age: 9 Year
  Sex: Male
  Weight: 38.1 kg

DRUGS (1)
  1. OMNITROPE [Suspect]
     Active Substance: SOMATROPIN
     Indication: PRADER-WILLI SYNDROME
     Dosage: 2 MG, QD
     Route: 058
     Dates: start: 20121022

REACTIONS (3)
  - Insulin-like growth factor increased [Recovered/Resolved]
  - Overdose [Recovered/Resolved]
  - Drug administered in wrong device [Recovered/Resolved]

NARRATIVE: CASE EVENT DATE: 20130627
